FAERS Safety Report 14546822 (Version 1)
Quarter: 2018Q1

REPORT INFORMATION
  Report Type: Spontaneous
  Country: US (occurrence: US)
  Receive Date: 20180219
  Receipt Date: 20180219
  Transmission Date: 20180509
  Serious: No
  Sender: FDA-Public Use
  Company Number: US-PFIZER INC-2018065384

PATIENT
  Age: 80 Year
  Sex: Male
  Weight: 68.4 kg

DRUGS (2)
  1. ADVIL LIQUI-GELS [Suspect]
     Active Substance: IBUPROFEN
     Indication: HEADACHE
     Dosage: 2 DF, UNK
  2. SUDAFED [Concomitant]
     Active Substance: PSEUDOEPHEDRINE HYDROCHLORIDE
     Indication: BLOOD CHOLESTEROL ABNORMAL
     Dosage: ONCE AT NIGHT

REACTIONS (5)
  - Feeling abnormal [Unknown]
  - Pruritus [Unknown]
  - Erythema [Unknown]
  - Feeling hot [Unknown]
  - Urticaria [Unknown]
